FAERS Safety Report 21988061 (Version 1)
Quarter: 2023Q1

REPORT INFORMATION
  Report Type: Spontaneous
  Country: CN (occurrence: None)
  Receive Date: 20230214
  Receipt Date: 20230214
  Transmission Date: 20230418
  Serious: Yes (Other)
  Sender: FDA-Public Use
  Company Number: CN-ROCHE-3280872

PATIENT
  Age: 83 Year
  Sex: Female
  Weight: 80 kg

DRUGS (18)
  1. OBINUTUZUMAB [Suspect]
     Active Substance: OBINUTUZUMAB
     Indication: Follicular lymphoma
     Dosage: OBINUTUZUMAB +ORELABRUTINIB+ LENALIDOMIDE ,26 /SEP/2021, 13/OCT/2021, 02/NOV/2021. 02/NOV/2021, 01/D
     Route: 042
  2. OBINUTUZUMAB [Suspect]
     Active Substance: OBINUTUZUMAB
     Dosage: OBINUTUZUMAB+CDOP REGIMEN
     Route: 042
     Dates: start: 20220501, end: 202205
  3. OBINUTUZUMAB [Suspect]
     Active Substance: OBINUTUZUMAB
     Dosage: GAZYVA + SELINEXOR + HALF DOSE OF CDOP
     Route: 042
     Dates: start: 20220515
  4. POLATUZUMAB VEDOTIN [Suspect]
     Active Substance: POLATUZUMAB VEDOTIN
     Indication: Follicular lymphoma
     Dosage: POLA + BENDAMUSTINE + SELINEXOR REGIMEN, 1.8MG/KG, D1
     Route: 065
     Dates: start: 2022
  5. RITUXIMAB [Concomitant]
     Active Substance: RITUXIMAB
     Indication: Follicular lymphoma
     Dosage: R-CVP REGIMEN
     Route: 042
     Dates: start: 2021
  6. VINCRISTINE [Concomitant]
     Active Substance: VINCRISTINE
     Indication: Follicular lymphoma
     Dates: start: 20220501, end: 202205
  7. VINCRISTINE [Concomitant]
     Active Substance: VINCRISTINE
     Dosage: R-CVP REGIMEN
  8. PREDNISONE [Concomitant]
     Active Substance: PREDNISONE
     Indication: Follicular lymphoma
     Dosage: R-CVP REGIMEN
  9. PREDNISONE [Concomitant]
     Active Substance: PREDNISONE
     Dosage: OBINUTUZUMAB + CDOP REGIMEN
     Dates: start: 20220501, end: 202205
  10. PREDNISONE [Concomitant]
     Active Substance: PREDNISONE
     Dosage: OBINUTUZUMAB + SELINEXOR + HALF DOSE OF CDOP
     Dates: start: 20220526
  11. ORELABRUTINIB [Concomitant]
     Active Substance: ORELABRUTINIB
     Indication: Follicular lymphoma
     Dosage: OBINUTUZUMAB +ORELABRUTINIB+ LENALIDOMIDE ,26 -SEP-2021, 13-OCT-2021, 02-?NOV-2021. 02-NOV-2021, 01-
  12. LENALIDOMIDE [Concomitant]
     Active Substance: LENALIDOMIDE
     Indication: Follicular lymphoma
  13. DOXORUBICIN HYDROCHLORIDE [Concomitant]
     Active Substance: DOXORUBICIN HYDROCHLORIDE
     Indication: Follicular lymphoma
  14. SELINEXOR [Concomitant]
     Active Substance: SELINEXOR
     Indication: Follicular lymphoma
  15. BENDAMUSTINE [Concomitant]
     Active Substance: BENDAMUSTINE
     Indication: Follicular lymphoma
     Dosage: POLA + BENDAMUSTINE + SELINEXOR, D2-3
  16. CYCLOPHOSPHAMIDE [Concomitant]
     Active Substance: CYCLOPHOSPHAMIDE
     Indication: Follicular lymphoma
     Dosage: R-CVP REGIMEN
     Dates: start: 2021
  17. CYCLOPHOSPHAMIDE [Concomitant]
     Active Substance: CYCLOPHOSPHAMIDE
     Dosage: OBINUTUZUMAB + CDOP REGIMEN
     Dates: start: 20220501, end: 202205
  18. CYCLOPHOSPHAMIDE [Concomitant]
     Active Substance: CYCLOPHOSPHAMIDE
     Dosage: OBINUTUZUMAB + SELINEXOR + HALF DOSE OF CDOP
     Dates: start: 20220526

REACTIONS (3)
  - Agranulocytosis [Unknown]
  - Pyrexia [Recovered/Resolved]
  - Anaemia [Unknown]

NARRATIVE: CASE EVENT DATE: 20220425
